FAERS Safety Report 8881869 (Version 1)
Quarter: 2012Q4

REPORT INFORMATION
  Report Type: 
  Country: US (occurrence: US)
  Receive Date: 20121102
  Receipt Date: 20121102
  Transmission Date: 20130627
  Serious: Yes (Disabling, Other)
  Sender: FDA-Public Use
  Company Number: PHHY2012US096283

PATIENT
  Age: 39 Year
  Sex: Female
  Weight: 152 kg

DRUGS (12)
  1. VALSARTAN [Suspect]
     Dates: start: 20120910
  2. POTASSIUM CHLORIDE [Concomitant]
     Indication: OEDEMA PERIPHERAL
     Dosage: (20 Meq)
     Route: 048
     Dates: start: 2005, end: 20120910
  3. POTASSIUM CHLORIDE [Concomitant]
     Dosage: UNK UKN, UNK
     Dates: start: 20120912
  4. FUROSEMIDE [Concomitant]
     Indication: OEDEMA PERIPHERAL
     Dosage: 20 mg, QD
     Route: 048
     Dates: start: 2005, end: 20120910
  5. FUROSEMIDE [Concomitant]
     Dosage: UNK UKN, UNK
     Dates: start: 20120912
  6. METHYLPHENIDATE [Concomitant]
     Indication: ATTENTION DEFICIT/HYPERACTIVITY DISORDER
     Dosage: 20 mg, BID
     Route: 048
     Dates: start: 201207
  7. CLONAZEPAM [Concomitant]
     Indication: ANXIETY
     Dosage: 0.5 mg, QD
     Route: 048
     Dates: start: 200801, end: 20120909
  8. ARMOUR THYROID [Concomitant]
     Indication: HYPOTHYROIDISM
     Dosage: 30 mg, QD
     Dates: start: 2004, end: 20120910
  9. ARMOUR THYROID [Concomitant]
     Dosage: UNK
     Dates: start: 20121005
  10. GABAPENTIN [Concomitant]
     Indication: COMPLEX REGIONAL PAIN SYNDROME
     Dosage: 800 mg, BID
     Route: 048
     Dates: start: 201112
  11. ACYCLOVIR [Concomitant]
     Indication: PROPHYLAXIS
     Dosage: 400 mg, QD
     Route: 048
     Dates: start: 20120621
  12. FERRICET [Concomitant]
     Indication: ANAEMIA
     Dosage: 125 mg, UNK
     Route: 042
     Dates: start: 20120801, end: 20120810

REACTIONS (19)
  - Eustachian tube dysfunction [Not Recovered/Not Resolved]
  - Hearing impaired [Not Recovered/Not Resolved]
  - Pharyngeal oedema [Unknown]
  - Swelling face [Not Recovered/Not Resolved]
  - Middle ear inflammation [Not Recovered/Not Resolved]
  - Ear pain [Not Recovered/Not Resolved]
  - Ear infection [Recovered/Resolved with Sequelae]
  - Ear congestion [Unknown]
  - Neck pain [Unknown]
  - Presyncope [Unknown]
  - Auricular swelling [Not Recovered/Not Resolved]
  - Sinusitis [Recovered/Resolved with Sequelae]
  - Nasal congestion [Recovering/Resolving]
  - Sinus congestion [Recovering/Resolving]
  - Rhinalgia [Unknown]
  - Local swelling [Not Recovered/Not Resolved]
  - Oedema peripheral [Recovered/Resolved]
  - Headache [Recovering/Resolving]
  - Nausea [Unknown]
